FAERS Safety Report 9404058 (Version 1)
Quarter: 2013Q3

REPORT INFORMATION
  Report Type: Spontaneous
  Country: GB (occurrence: GB)
  Receive Date: 20130717
  Receipt Date: 20130717
  Transmission Date: 20140515
  Serious: Yes (Death, Hospitalization)
  Sender: FDA-Public Use
  Company Number: GB-ROXANE LABORATORIES, INC.-2013-RO-01154RO

PATIENT
  Age: 68 Year
  Sex: Female

DRUGS (4)
  1. AZATHIOPRINE [Suspect]
     Dosage: 125 MG
  2. ASACOL [Suspect]
     Dosage: 3.2 G
  3. FERROUS FUMARATE [Suspect]
     Dosage: 210 MG
  4. CALCICHEW D3 [Suspect]

REACTIONS (3)
  - Pneumonia [Fatal]
  - Myelodysplastic syndrome [Unknown]
  - Refractory anaemia with an excess of blasts [Unknown]
